FAERS Safety Report 12503356 (Version 1)
Quarter: 2016Q2

REPORT INFORMATION
  Report Type: Spontaneous
  Country: US (occurrence: None)
  Receive Date: 20160627
  Receipt Date: 20160627
  Transmission Date: 20160815
  Serious: Yes (Hospitalization, Disabling, Other)
  Sender: FDA-Public Use
  Company Number: None

PATIENT
  Age: 58 Year
  Sex: Female
  Weight: 77.11 kg

DRUGS (4)
  1. ESTROGEN [Concomitant]
     Active Substance: ESTRONE\SUS SCROFA OVARY
  2. PROZAAC [Concomitant]
  3. FENTANYL TRANSDERMAL SYSTEM [Suspect]
     Active Substance: FENTANYL
     Indication: ARTHRALGIA
     Dosage: 1 PATCH (ES) EVERY 12 HOURS APPLIED AS MEDICATED PATCH TO SKIN
     Dates: start: 20061010, end: 20090409
  4. NEXIUM [Concomitant]
     Active Substance: ESOMEPRAZOLE MAGNESIUM

REACTIONS (8)
  - Respiratory arrest [None]
  - Coma [None]
  - Loss of consciousness [None]
  - Cardiac arrest [None]
  - Road traffic accident [None]
  - Blindness unilateral [None]
  - Paralysis [None]
  - Amnesia [None]

NARRATIVE: CASE EVENT DATE: 20090405
